FAERS Safety Report 5990659-X (Version None)
Quarter: 2008Q4

REPORT INFORMATION
  Report Type: 
  Country: None (occurrence: None)
  Receive Date: 20081211
  Receipt Date: 20081128
  Transmission Date: 20090506
  Serious: Yes (Other)
  Sender: FDA-Public Use
  Company Number: PHBS2007JP20636

PATIENT
  Age: 73 Year
  Sex: Female

DRUGS (3)
  1. TOFRANIL [Suspect]
     Indication: ENURESIS
     Dosage: UNK
     Route: 048
  2. MEVALOTIN [Suspect]
     Indication: HYPERLIPIDAEMIA
     Route: 048
  3. DRUG THERAPY NOS [Concomitant]

REACTIONS (3)
  - BLADDER MASS [None]
  - CHROMATURIA [None]
  - DYSURIA [None]
